FAERS Safety Report 25062780 (Version 1)
Quarter: 2025Q1

REPORT INFORMATION
  Report Type: Spontaneous
  Country: US (occurrence: None)
  Receive Date: 20250310
  Receipt Date: 20250310
  Transmission Date: 20250409
  Serious: Yes (unspecified)
  Sender: FDA-CTU
  Company Number: None

PATIENT
  Age: 86 Year
  Weight: 74.3 kg

DRUGS (1)
  1. CEFTRIAXONE [Suspect]
     Active Substance: CEFTRIAXONE
     Dosage: FREQUENCY : DAILY;?
     Route: 042
     Dates: start: 20241101, end: 20241101

REACTIONS (3)
  - Pulse absent [None]
  - Agonal respiration [None]
  - Cardio-respiratory arrest [None]

NARRATIVE: CASE EVENT DATE: 20241101
